FAERS Safety Report 14569054 (Version 3)
Quarter: 2018Q3

REPORT INFORMATION
  Report Type: Spontaneous
  Country: JP (occurrence: JP)
  Receive Date: 20180223
  Receipt Date: 20180716
  Transmission Date: 20181010
  Serious: Yes (Other)
  Sender: FDA-Public Use
  Company Number: JP-BRISTOL-MYERS SQUIBB COMPANY-BMS-2018-014658

PATIENT

DRUGS (1)
  1. ORENCIA [Suspect]
     Active Substance: ABATACEPT
     Indication: PRODUCT USED FOR UNKNOWN INDICATION
     Dosage: UNK UNK, QWK
     Route: 065
     Dates: start: 201412

REACTIONS (1)
  - Device malfunction [Unknown]

NARRATIVE: CASE EVENT DATE: 20180213
